FAERS Safety Report 9559453 (Version 1)
Quarter: 2013Q3

REPORT INFORMATION
  Report Type: Spontaneous
  Country: US (occurrence: None)
  Receive Date: 20130913
  Receipt Date: 20130913
  Transmission Date: 20140515
  Serious: Yes (Other)
  Sender: FDA-Public Use
  Company Number: 1000045242

PATIENT
  Age: 67 Year
  Sex: Female

DRUGS (8)
  1. DALIRESP [Suspect]
     Indication: CHRONIC OBSTRUCTIVE PULMONARY DISEASE
     Dosage: 500MCG (500 MCG, 1 IN 1 D), ORAL
     Route: 048
     Dates: start: 20130409, end: 20130412
  2. LEVOTHYROXINE (LEVOTHYROXINE SODIUM) (LEVOTHYROXINE SODIUM) [Concomitant]
  3. ALBUTEEROL SULFATE (SALBUTAMOL SULFATE) (SALBUTAMOL SULFATE) [Concomitant]
  4. ATROVENT (IPRATROPIUM BROMIDE) (IPRATROPIUM BROMIDE) [Concomitant]
  5. PROAIR HFA (SALBUTAMOL SULFATE) (SALBUTAMOL SULFATE) [Concomitant]
  6. ADVAIR (SERETIDE) (SERETIDE) [Concomitant]
  7. OMEPRAZOLE (OMEPRAZOLE) (OMEPRAZOLE) [Concomitant]
  8. LETROZOLE (LETROZOLE) (LETROZOLE) [Concomitant]

REACTIONS (6)
  - Nausea [None]
  - Diarrhoea [None]
  - Pyrexia [None]
  - Pain [None]
  - Tremor [None]
  - Dyspnoea [None]
